FAERS Safety Report 23379441 (Version 1)
Quarter: 2024Q1

REPORT INFORMATION
  Report Type: Spontaneous
  Country: GB (occurrence: GB)
  Receive Date: 20240108
  Receipt Date: 20240108
  Transmission Date: 20240410
  Serious: Yes (Other)
  Sender: FDA-Public Use
  Company Number: None

PATIENT
  Age: 54 Year
  Sex: Male
  Weight: 97 kg

DRUGS (3)
  1. TERBINAFINE [Suspect]
     Active Substance: TERBINAFINE
     Indication: Ill-defined disorder
     Dosage: UNK
     Route: 065
     Dates: start: 20240104
  2. TERBINAFINE [Concomitant]
     Active Substance: TERBINAFINE
     Indication: Ill-defined disorder
     Dosage: 1 DOSAGE FORM, QD
     Route: 065
     Dates: start: 20231227
  3. BENZALKONIUM CHLORIDE\DIMETHICONE\HYDROCORTISONE\NYSTATIN [Concomitant]
     Active Substance: BENZALKONIUM CHLORIDE\DIMETHICONE\HYDROCORTISONE\NYSTATIN
     Indication: Ill-defined disorder
     Dosage: UNK, TID (APPLY 3 TIMES/DAY)
     Route: 065
     Dates: start: 20231214, end: 20231219

REACTIONS (1)
  - Rash [Recovering/Resolving]

NARRATIVE: CASE EVENT DATE: 20240104
